FAERS Safety Report 5916256-X (Version None)
Quarter: 2008Q4

REPORT INFORMATION
  Report Type: 
  Country: None (occurrence: None)
  Receive Date: 20081013
  Receipt Date: 20081002
  Transmission Date: 20090506
  Serious: Yes (Other)
  Sender: FDA-Public Use
  Company Number: PHHY2008FR23964

PATIENT
  Age: 6 Year
  Sex: Female

DRUGS (2)
  1. EXJADE [Suspect]
     Indication: IRON OVERLOAD
     Dosage: 250 MG, QD (14 MG/KG/DAY)
     Route: 048
     Dates: start: 20061101, end: 20080601
  2. EXJADE [Suspect]
     Dosage: 375 MG, QD (22 MG/KG/DAY)
     Route: 048
     Dates: start: 20080601

REACTIONS (2)
  - GASTRITIS HAEMORRHAGIC [None]
  - HAEMOGLOBIN DECREASED [None]
